FAERS Safety Report 5973376-1 (Version None)
Quarter: 2008Q4

REPORT INFORMATION
  Report Type: 
  Country: None (occurrence: None)
  Receive Date: 20081201
  Receipt Date: 20081009
  Transmission Date: 20090506
  Serious: Yes (Hospitalization)
  Sender: FDA-Public Use
  Company Number: US-AMGEN-KDL282518

PATIENT
  Sex: Female

DRUGS (1)
  1. ENBREL [Suspect]
     Indication: RHEUMATOID ARTHRITIS
     Route: 058
     Dates: start: 20020101

REACTIONS (5)
  - ADVERSE DRUG REACTION [None]
  - DIZZINESS [None]
  - DRUG INEFFECTIVE [None]
  - JOINT SWELLING [None]
  - RHEUMATOID FACTOR INCREASED [None]
